FAERS Safety Report 5144111-4 (Version None)
Quarter: 2006Q4

REPORT INFORMATION
  Report Type: 
  Country: None (occurrence: None)
  Receive Date: 20061106
  Receipt Date: 20061023
  Transmission Date: 20070319
  Serious: Yes (Death, Other)
  Sender: FDA-Public Use
  Company Number: PHBS2006US16498

PATIENT
  Age: 26 Year
  Sex: Male

DRUGS (3)
  1. PREDNISONE TAB [Suspect]
     Indication: RENAL TRANSPLANT
     Dosage: 2.5 MG/D
     Route: 065
  2. CYCLOSPORINE [Suspect]
     Indication: RENAL TRANSPLANT
     Dosage: 125 MG, BID
     Route: 065
  3. CYCLOSPORINE [Suspect]
     Dosage: 100 MG, BID
     Route: 065

REACTIONS (15)
  - BLOOD PRODUCT TRANSFUSION DEPENDENT [None]
  - BONE MARROW DISORDER [None]
  - BONE MARROW FAILURE [None]
  - CIRCULATORY COLLAPSE [None]
  - CYTOMEGALOVIRUS INFECTION [None]
  - EPISTAXIS [None]
  - ERYTHEMA INFECTIOSUM [None]
  - EXTRANODAL MARGINAL ZONE B-CELL LYMPHOMA (MALT TYPE) [None]
  - HAEMORRHAGE [None]
  - LOCAL SWELLING [None]
  - LOSS OF CONSCIOUSNESS [None]
  - LYMPHADENOPATHY [None]
  - LYMPHOPROLIFERATIVE DISORDER [None]
  - SUDDEN DEATH [None]
  - WEIGHT DECREASED [None]
